FAERS Safety Report 8863184 (Version 2)
Quarter: 2015Q4

REPORT INFORMATION
  Report Type: Report from Study
  Country: JP (occurrence: JP)
  Receive Date: 20121026
  Receipt Date: 20151202
  Transmission Date: 20160305
  Serious: Yes (Death, Hospitalization)
  Sender: FDA-Public Use
  Company Number: JP-009507513-2006SP007996

PATIENT
  Age: 51 Year
  Sex: Female
  Weight: 43 kg

DRUGS (26)
  1. TEMOZOLOMIDE. [Suspect]
     Active Substance: TEMOZOLOMIDE
     Dosage: ACTUALLY DAILY DOSE 200 MG
     Route: 048
     Dates: start: 20080609, end: 20080612
  2. GASTER [Concomitant]
     Active Substance: FAMOTIDINE
     Indication: PROPHYLAXIS
     Dosage: DAILY DOSE UNKNOWN
     Route: 048
     Dates: start: 20070611
  3. TEMOZOLOMIDE. [Suspect]
     Active Substance: TEMOZOLOMIDE
     Dosage: ACTUALLY DAILY DOSE 200 MG
     Route: 048
     Dates: start: 20070808, end: 20070811
  4. TEMOZOLOMIDE. [Suspect]
     Active Substance: TEMOZOLOMIDE
     Dosage: ACTUALLY DAILY DOSE 200 MG
     Route: 048
     Dates: start: 20080121, end: 20080124
  5. TEMOZOLOMIDE. [Suspect]
     Active Substance: TEMOZOLOMIDE
     Dosage: ACTUALLY DAILY DOSE 200 MG
     Route: 048
     Dates: start: 20061227, end: 20061231
  6. TEMOZOLOMIDE. [Suspect]
     Active Substance: TEMOZOLOMIDE
     Dosage: ACTUALLY DAILY DOSE 200 MG
     Route: 048
     Dates: start: 20070613, end: 20070617
  7. TEMOZOLOMIDE. [Suspect]
     Active Substance: TEMOZOLOMIDE
     Dosage: ACTUALLY DAILY DOSE 200 MG
     Route: 048
     Dates: start: 20071126, end: 20071129
  8. TEMOZOLOMIDE. [Suspect]
     Active Substance: TEMOZOLOMIDE
     Dosage: ACTUALLY DAILY DOSE 200 MG
     Route: 048
     Dates: start: 20080414, end: 20080417
  9. TEMOZOLOMIDE. [Suspect]
     Active Substance: TEMOZOLOMIDE
     Indication: ANAPLASTIC ASTROCYTOMA
     Dosage: ACTUALLY DAILY DOSE 100 MG
     Route: 048
     Dates: start: 20060919, end: 20061031
  10. TEMOZOLOMIDE. [Suspect]
     Active Substance: TEMOZOLOMIDE
     Dosage: ACTUALLY DAILY DOSE 200 MG
     Route: 048
     Dates: start: 20070124, end: 20070128
  11. TEMOZOLOMIDE. [Suspect]
     Active Substance: TEMOZOLOMIDE
     Dosage: ACTUALLY DAILY DOSE 200 MG
     Route: 048
     Dates: start: 20070221, end: 20070225
  12. TEMOZOLOMIDE. [Suspect]
     Active Substance: TEMOZOLOMIDE
     Dosage: ACTUALLY DAILY DOSE 200 MG
     Route: 048
     Dates: start: 20071029, end: 20071102
  13. TEMOZOLOMIDE. [Suspect]
     Active Substance: TEMOZOLOMIDE
     Dosage: ACTUALLY DAILY DOSE 200 MG
     Route: 048
     Dates: start: 20061129, end: 20061203
  14. TEMOZOLOMIDE. [Suspect]
     Active Substance: TEMOZOLOMIDE
     Dosage: ACTUALLY DAILY DOSE 200 MG
     Route: 048
     Dates: start: 20070321, end: 20070325
  15. TEMOZOLOMIDE. [Suspect]
     Active Substance: TEMOZOLOMIDE
     Dosage: ACTUALLY DAILY DOSE 200 MG
     Route: 048
     Dates: start: 20070418, end: 20070422
  16. TEMOZOLOMIDE. [Suspect]
     Active Substance: TEMOZOLOMIDE
     Dosage: ACTUALLY DAILY DOSE 200 MG
     Route: 048
     Dates: start: 20070516, end: 20070520
  17. TEMOZOLOMIDE. [Suspect]
     Active Substance: TEMOZOLOMIDE
     Dosage: ACTUALLY DAILY DOSE 200 MG
     Route: 048
     Dates: start: 20071219, end: 20071222
  18. ZOFRAN [Concomitant]
     Active Substance: ONDANSETRON HYDROCHLORIDE
     Indication: PROPHYLAXIS
     Dosage: UNK
     Route: 048
     Dates: start: 20061202
  19. TEMOZOLOMIDE. [Suspect]
     Active Substance: TEMOZOLOMIDE
     Dosage: ACTUALLY DAILY DOSE 200 MG
     Route: 048
     Dates: start: 20070711, end: 20070714
  20. TEMOZOLOMIDE. [Suspect]
     Active Substance: TEMOZOLOMIDE
     Dosage: ACTUALLY DAILY DOSE 200 MG
     Route: 048
     Dates: start: 20070903, end: 20070905
  21. TEMOZOLOMIDE. [Suspect]
     Active Substance: TEMOZOLOMIDE
     Dosage: ACTUALLY DAILY DOSE 200 MG
     Route: 048
     Dates: start: 20080218, end: 20080221
  22. TEMOZOLOMIDE. [Suspect]
     Active Substance: TEMOZOLOMIDE
     Dosage: ACTUALLY DAILY DOSE 200 MG
     Route: 048
     Dates: start: 20080317, end: 20080320
  23. TEMOZOLOMIDE. [Suspect]
     Active Substance: TEMOZOLOMIDE
     Dosage: ACTUALLY DAILY DOSE 200 MG
     Route: 048
     Dates: start: 20080702, end: 20080705
  24. TEMOZOLOMIDE. [Suspect]
     Active Substance: TEMOZOLOMIDE
     Dosage: ACTUALLY DAILY DOSE 200 MG
     Route: 048
     Dates: start: 20071001, end: 20071004
  25. TEMOZOLOMIDE. [Suspect]
     Active Substance: TEMOZOLOMIDE
     Dosage: ACTUALLY DAILY DOSE 200 MG
     Route: 048
     Dates: start: 20080512, end: 20080515
  26. TEMOZOLOMIDE. [Suspect]
     Active Substance: TEMOZOLOMIDE
     Dosage: ACTUALLY DAILY DOSE 200 MG
     Route: 048
     Dates: start: 20080805, end: 20080807

REACTIONS (25)
  - Lymphocyte count decreased [Recovered/Resolved]
  - Vomiting [Recovering/Resolving]
  - Vomiting [Recovered/Resolved]
  - Lymphocyte count decreased [Not Recovered/Not Resolved]
  - Vomiting [Recovering/Resolving]
  - Nausea [Recovering/Resolving]
  - Vomiting [Recovering/Resolving]
  - Disease progression [Fatal]
  - Nausea [Recovered/Resolved]
  - Vomiting [Recovering/Resolving]
  - Nausea [Recovering/Resolving]
  - Vomiting [Recovering/Resolving]
  - Red blood cell count decreased [Recovered/Resolved]
  - Vomiting [Recovering/Resolving]
  - Nausea [Recovering/Resolving]
  - Nausea [Recovering/Resolving]
  - Nausea [Recovering/Resolving]
  - Nausea [Recovering/Resolving]
  - Vomiting [Recovering/Resolving]
  - Nausea [Recovering/Resolving]
  - Nausea [Recovering/Resolving]
  - Vomiting [Recovering/Resolving]
  - Nausea [Recovering/Resolving]
  - Nausea [Recovering/Resolving]
  - Vomiting [Recovering/Resolving]

NARRATIVE: CASE EVENT DATE: 20061030
